FAERS Safety Report 5035368-9 (Version None)
Quarter: 2006Q2

REPORT INFORMATION
  Report Type: 
  Country: None (occurrence: None)
  Receive Date: 20060519
  Receipt Date: 20060410
  Transmission Date: 20061013
  Serious: No
  Sender: FDA-Public Use
  Company Number: TPA2006A00328

PATIENT
  Age: 61 Year
  Sex: Male
  Weight: 117.9352 kg

DRUGS (7)
  1. ROZEREM [Suspect]
     Indication: INSOMNIA
     Dosage: PER ORAL
     Route: 048
     Dates: start: 20060301, end: 20060304
  2. XANAX [Suspect]
     Indication: INSOMNIA
     Dosage: 1 MG
     Dates: start: 20040101
  3. LEXAPRO [Concomitant]
  4. LISINOPRIL [Concomitant]
  5. HYDROCHLOROTHIAZIDE [Concomitant]
  6. CRESTOR [Concomitant]
  7. ASPIRIN [Concomitant]

REACTIONS (5)
  - APATHY [None]
  - DRUG INTERACTION [None]
  - LETHARGY [None]
  - SEDATION [None]
  - SOMNOLENCE [None]
